FAERS Safety Report 9372235 (Version 1)
Quarter: 2013Q2

REPORT INFORMATION
  Report Type: Report from Study
  Country: US (occurrence: US)
  Receive Date: 20130627
  Receipt Date: 20130627
  Transmission Date: 20140414
  Serious: Yes (Other)
  Sender: FDA-Public Use
  Company Number: US-MYLANLABS-2012S1017658

PATIENT
  Age: 59 Year
  Sex: Male

DRUGS (6)
  1. CLOZAPINE TABLETS [Suspect]
     Route: 048
     Dates: start: 201110, end: 20120831
  2. CRESTOR [Concomitant]
  3. PROPRANOLOL [Concomitant]
  4. SERTRALINE [Concomitant]
  5. DEPAKOTE ER [Concomitant]
  6. BENZOTROPINE [Concomitant]

REACTIONS (1)
  - Granulocytopenia [Recovered/Resolved]
